FAERS Safety Report 12386206 (Version 1)
Quarter: 2016Q2

REPORT INFORMATION
  Report Type: Spontaneous
  Country: CN (occurrence: CN)
  Receive Date: 20160519
  Receipt Date: 20160519
  Transmission Date: 20160815
  Serious: Yes (Other)
  Sender: FDA-Public Use
  Company Number: CN-BAYER-2016-085073

PATIENT
  Age: 35 Year
  Sex: Female

DRUGS (2)
  1. YASMIN [Suspect]
     Active Substance: DROSPIRENONE\ETHINYL ESTRADIOL
     Indication: TISSUE ADHESION PROPHYLAXIS
     Dosage: UNK
     Route: 048
     Dates: start: 20160405, end: 20160420
  2. YASMIN [Suspect]
     Active Substance: DROSPIRENONE\ETHINYL ESTRADIOL
     Indication: ENDOMETRIAL DISORDER

REACTIONS (9)
  - Mental impairment [None]
  - Calcium deficiency [None]
  - Off label use [None]
  - Product use issue [None]
  - Muscle spasms [None]
  - Asthenia [None]
  - Depression [None]
  - Irritability [None]
  - Withdrawal bleed [None]

NARRATIVE: CASE EVENT DATE: 2016
